FAERS Safety Report 5287580-1 (Version None)
Quarter: 2007Q1

REPORT INFORMATION
  Report Type: 
  Country: None (occurrence: None)
  Receive Date: 20070126
  Receipt Date: 20050919
  Transmission Date: 20070707
  Serious: No
  Sender: FDA-Public Use
  Company Number: 2006CT001148

PATIENT
  Age: 78 Year
  Sex: Female
  Weight: 74.8 kg

DRUGS (13)
  1. VENTAVIS [Suspect]
     Indication: PULMONARY HYPERTENSION
     Dosage: 2.5 UG 6XD; INH
     Route: 055
     Dates: start: 20050706, end: 20050919
  2. LASIX [Concomitant]
  3. KLOR-CON [Concomitant]
  4. DIGITEK [Concomitant]
  5. VITAMIN CAP [Concomitant]
  6. LEVOXYL [Concomitant]
  7. WARFARIN SODIUM [Concomitant]
  8. TYLENOL [Concomitant]
  9. PAXIL [Concomitant]
  10. ATENOLOL [Concomitant]
  11. LISINOPRIL [Concomitant]
  12. TRACLEER [Concomitant]
  13. OXYGEN [Concomitant]

REACTIONS (4)
  - CHEST PAIN [None]
  - FATIGUE [None]
  - NO THERAPEUTIC RESPONSE [None]
  - THROAT IRRITATION [None]
